FAERS Safety Report 17681769 (Version 2)
Quarter: 2020Q2

REPORT INFORMATION
  Report Type: Spontaneous
  Country: IT (occurrence: IT)
  Receive Date: 20200417
  Receipt Date: 20200429
  Transmission Date: 20200714
  Serious: No
  Sender: FDA-Public Use
  Company Number: IT-009507513-2004USA004724

PATIENT
  Sex: Female

DRUGS (1)
  1. NUVARING [Suspect]
     Active Substance: ETHINYL ESTRADIOL\ETONOGESTREL
     Dosage: 1 RING
     Route: 067
     Dates: start: 2017

REACTIONS (5)
  - Vulvitis [Unknown]
  - Device breakage [Unknown]
  - Device expulsion [Unknown]
  - Vulvovaginal inflammation [Unknown]
  - Medical device site pain [Unknown]
